FAERS Safety Report 8824973 (Version 2)
Quarter: 2012Q4

REPORT INFORMATION
  Report Type: 
  Country: US (occurrence: US)
  Receive Date: 20121004
  Receipt Date: 20121025
  Transmission Date: 20130627
  Serious: No
  Sender: FDA-Public Use
  Company Number: US-PFIZER INC-2012244354

PATIENT
  Age: 37 Year
  Sex: Female
  Weight: 61.22 kg

DRUGS (6)
  1. LYRICA [Suspect]
     Indication: NEURALGIA
     Dosage: 75 mg, 2x/day
     Route: 048
     Dates: start: 20110414
  2. LYRICA [Suspect]
     Dosage: 75 mg, 3x/day
     Route: 048
     Dates: start: 20120112, end: 201209
  3. BACLOFEN [Concomitant]
     Dosage: 20 mg, 3x/day
  4. NORCO [Concomitant]
     Indication: PAIN
     Dosage: UNK
     Dates: start: 20120112
  5. FLEXERIL [Concomitant]
     Indication: MUSCLE SPASMS
     Dosage: 10 mg, 3x/day as needed
     Dates: start: 20120131
  6. CARISOPRODOL [Concomitant]
     Indication: MUSCLE SPASMS
     Dosage: UNK
     Dates: start: 20111116, end: 20120131

REACTIONS (4)
  - Paraesthesia [Not Recovered/Not Resolved]
  - Neuropathy peripheral [Unknown]
  - Muscle spasms [Not Recovered/Not Resolved]
  - Withdrawal syndrome [Unknown]
